FAERS Safety Report 13506748 (Version 1)
Quarter: 2017Q2

REPORT INFORMATION
  Report Type: Report from Study
  Country: CA (occurrence: CA)
  Receive Date: 20170502
  Receipt Date: 20170502
  Transmission Date: 20170830
  Serious: Yes (Hospitalization, Other)
  Sender: FDA-Public Use
  Company Number: CA-GILEAD-2017-0267544

PATIENT
  Age: 61 Year
  Sex: Male

DRUGS (10)
  1. SOFOSBUVIR W/VELPATASVIR [Suspect]
     Active Substance: SOFOSBUVIR\VELPATASVIR
     Indication: CHRONIC HEPATITIS C
     Dosage: 400MG TABLETS ONCE DAILY (IN THE MORNING)
     Route: 048
     Dates: start: 20170317
  2. SOFOSBUVIR W/VELPATASVIR [Suspect]
     Active Substance: SOFOSBUVIR\VELPATASVIR
     Dosage: 400MG TABLETS ONCE DAILY (IN THE MORNING)
     Route: 048
     Dates: start: 201704
  3. SPIRONOLACTONE. [Concomitant]
     Active Substance: SPIRONOLACTONE
  4. FUROSEMIDE. [Concomitant]
     Active Substance: FUROSEMIDE
  5. CARVEDILOL. [Concomitant]
     Active Substance: CARVEDILOL
  6. IBAVYR [Suspect]
     Active Substance: RIBAVIRIN
     Indication: CHRONIC HEPATITIS C
     Dosage: 600MG TWICE DAILY (ONE IN THE MORNING AND ONE IN THE EVENING)UNK
     Route: 048
     Dates: start: 20170317
  7. OMEPRAZOLE. [Concomitant]
     Active Substance: OMEPRAZOLE
  8. LACTULOSE. [Concomitant]
     Active Substance: LACTULOSE
  9. IBAVYR [Suspect]
     Active Substance: RIBAVIRIN
     Dosage: 600MG TWICE DAILY (ONE IN THE MORNING AND ONE IN THE EVENING)
     Route: 048
     Dates: start: 201704
  10. AMITRIPTYLINE [Concomitant]
     Active Substance: AMITRIPTYLINE

REACTIONS (5)
  - Treatment noncompliance [Unknown]
  - Intentional product misuse [Recovered/Resolved]
  - Encephalopathy [Recovering/Resolving]
  - Confusional state [Recovering/Resolving]
  - Overdose [Unknown]

NARRATIVE: CASE EVENT DATE: 20170330
